FAERS Safety Report 8200972-3 (Version None)
Quarter: 2012Q1

REPORT INFORMATION
  Report Type: 
  Country: None (occurrence: None)
  Receive Date: 20120312
  Receipt Date: 20111027
  Transmission Date: 20120608
  Serious: Yes (Hospitalization)
  Sender: FDA-Public Use
  Company Number: US-ABBOTT-11P-163-0858160-00

PATIENT
  Sex: Female
  Weight: 62.198 kg

DRUGS (3)
  1. LUPRON DEPOT [Suspect]
     Indication: VAGINAL HAEMORRHAGE
     Dates: start: 20110701, end: 20110701
  2. UNKNOWN HORMONAL PILLS [Suspect]
     Indication: VAGINAL HAEMORRHAGE
     Dates: start: 20110101, end: 20110101
  3. DEPO-PROVERA [Suspect]
     Indication: VAGINAL HAEMORRHAGE
     Dates: start: 20110601, end: 20110601

REACTIONS (1)
  - PULMONARY EMBOLISM [None]
